FAERS Safety Report 17806784 (Version 1)
Quarter: 2020Q2

REPORT INFORMATION
  Report Type: Spontaneous
  Country: US (occurrence: US)
  Receive Date: 20200519
  Receipt Date: 20200519
  Transmission Date: 20200714
  Serious: Yes (Other)
  Sender: FDA-Public Use
  Company Number: None

PATIENT
  Age: 71 Year
  Sex: Male
  Weight: 87 kg

DRUGS (1)
  1. DAPTOMYCIN. [Suspect]
     Active Substance: DAPTOMYCIN
     Indication: STAPHYLOCOCCAL BACTERAEMIA
     Route: 042
     Dates: start: 20200409, end: 20200508

REACTIONS (5)
  - Dyspnoea [None]
  - Eosinophilic pneumonia [None]
  - Pyrexia [None]
  - Pneumonia bacterial [None]
  - Pneumonia viral [None]

NARRATIVE: CASE EVENT DATE: 20200509
